FAERS Safety Report 12701276 (Version 1)
Quarter: 2016Q3

REPORT INFORMATION
  Report Type: Spontaneous
  Country: US (occurrence: None)
  Receive Date: 20160830
  Receipt Date: 20160830
  Transmission Date: 20161109
  Serious: Yes (Disabling)
  Sender: FDA-Public Use
  Company Number: None

PATIENT
  Age: 89 Year
  Sex: Female
  Weight: 56.7 kg

DRUGS (8)
  1. LISINOPRIL. [Concomitant]
     Active Substance: LISINOPRIL
  2. ELMIRON [Concomitant]
     Active Substance: PENTOSAN POLYSULFATE SODIUM
  3. DIHYDROCO [Concomitant]
  4. NORTRIPTYLINE [Concomitant]
     Active Substance: NORTRIPTYLINE
  5. ASPIRIN. [Concomitant]
     Active Substance: ASPIRIN
  6. CAFFEINE. [Concomitant]
     Active Substance: CAFFEINE
  7. VITAMIN D [Concomitant]
     Active Substance: CHOLECALCIFEROL
  8. METRONIDAZOLE. [Suspect]
     Active Substance: METRONIDAZOLE
     Indication: CYSTITIS
     Route: 048

REACTIONS (2)
  - Eating disorder [None]
  - Nausea [None]

NARRATIVE: CASE EVENT DATE: 20160816
